FAERS Safety Report 7477507-6 (Version None)
Quarter: 2011Q2

REPORT INFORMATION
  Report Type: 
  Country: None (occurrence: None)
  Receive Date: 20110410
  Receipt Date: 20110410
  Transmission Date: 20111010
  Serious: Yes (Other)
  Sender: FDA-Public Use
  Company Number: None

PATIENT
  Age: 27 Year
  Sex: Female
  Weight: 90.7194 kg

DRUGS (3)
  1. LABETALOL [Concomitant]
  2. COPAXONE [Suspect]
     Indication: RELAPSING-REMITTING MULTIPLE SCLEROSIS
     Dosage: 1ML DAILY SQ
     Route: 058
     Dates: start: 20080801, end: 20110516
  3. AVIANE-28 [Concomitant]

REACTIONS (1)
  - PULMONARY EMBOLISM [None]
